FAERS Safety Report 4459159-2 (Version None)
Quarter: 2004Q3

REPORT INFORMATION
  Report Type: 
  Country: None (occurrence: None)
  Receive Date: 20040927
  Receipt Date: 20040920
  Transmission Date: 20050211
  Serious: Yes (Hospitalization, Other)
  Sender: FDA-Public Use
  Company Number: 200417142US

PATIENT
  Sex: Male

DRUGS (1)
  1. LOVENOX [Suspect]
     Indication: HIP SURGERY
     Route: 058
     Dates: start: 20040901

REACTIONS (10)
  - BLOOD IRON DECREASED [None]
  - BODY TEMPERATURE INCREASED [None]
  - CHOKING [None]
  - CONVULSION [None]
  - DEEP VEIN THROMBOSIS [None]
  - DYSKINESIA [None]
  - EPISTAXIS [None]
  - FALL [None]
  - HAEMOGLOBIN DECREASED [None]
  - SYNCOPE [None]
